FAERS Safety Report 4504934-9 (Version None)
Quarter: 2004Q4

REPORT INFORMATION
  Report Type: 
  Country: None (occurrence: None)
  Receive Date: 20041020
  Receipt Date: 20040623
  Transmission Date: 20050328
  Serious: No
  Sender: FDA-Public Use
  Company Number: 2004-07-0471

PATIENT
  Age: 30 Year
  Sex: Female
  Weight: 79.3795 kg

DRUGS (2)
  1. CLARINEX [Suspect]
     Indication: NASAL CONGESTION
     Dosage: ORAL
     Route: 048
     Dates: start: 20040601, end: 20040603
  2. CLARINEX [Suspect]
     Indication: RHINORRHOEA
     Dosage: ORAL
     Route: 048
     Dates: start: 20040601, end: 20040603

REACTIONS (5)
  - DIZZINESS [None]
  - FATIGUE [None]
  - HEADACHE [None]
  - THINKING ABNORMAL [None]
  - UTERINE CONTRACTIONS DURING PREGNANCY [None]
